FAERS Safety Report 23948758 (Version 1)
Quarter: 2024Q2

REPORT INFORMATION
  Report Type: Spontaneous
  Country: US (occurrence: US)
  Receive Date: 20240607
  Receipt Date: 20240607
  Transmission Date: 20240716
  Serious: Yes (Hospitalization, Other)
  Sender: FDA-Public Use
  Company Number: US-SANDOZ-SDZ2024US055250

PATIENT
  Age: 74 Year
  Sex: Female

DRUGS (2)
  1. HEPARIN [Suspect]
     Active Substance: HEPARIN SODIUM
     Indication: Thrombosis prophylaxis
     Dosage: 5000 UNITS, Q8H UNFRACTIONATED
     Route: 058
  2. HEPARIN [Suspect]
     Active Substance: HEPARIN SODIUM
     Dosage: UNK UNFRACTIONATED
     Route: 042

REACTIONS (4)
  - Compartment syndrome [Unknown]
  - Heparin-induced thrombocytopenia [Recovering/Resolving]
  - Deep vein thrombosis [Unknown]
  - Acute myocardial infarction [Unknown]
